FAERS Safety Report 4527137-0 (Version None)
Quarter: 2004Q4

REPORT INFORMATION
  Report Type: 
  Country: None (occurrence: None)
  Receive Date: 20041202
  Receipt Date: 20040818
  Transmission Date: 20050328
  Serious: Yes (Disabling)
  Sender: FDA-Public Use
  Company Number: 20040800378

PATIENT
  Age: 32 Month
  Sex: Male
  Weight: 12.7007 kg

DRUGS (1)
  1. PHENERGAN [Suspect]
     Indication: VOMITING
     Dosage: 12.5 MG ONCE IM
     Route: 030
     Dates: start: 20040628, end: 20040628

REACTIONS (1)
  - PERONEAL NERVE PALSY [None]
